FAERS Safety Report 25984851 (Version 3)
Quarter: 2025Q4

REPORT INFORMATION
  Report Type: Report from Study
  Country: US (occurrence: US)
  Receive Date: 20251031
  Receipt Date: 20251208
  Transmission Date: 20260118
  Serious: No
  Sender: MALLINCKRODT
  Company Number: US-MALLINCKRODT-MNK202506792

PATIENT
  Sex: Male

DRUGS (1)
  1. CORTICOTROPIN [Suspect]
     Active Substance: CORTICOTROPIN
     Indication: Product used for unknown indication
     Dosage: UNKNOWN

REACTIONS (4)
  - Injection site pruritus [Recovered/Resolved]
  - Injection site mass [Unknown]
  - Injection site swelling [Recovering/Resolving]
  - Weight increased [Unknown]
